FAERS Safety Report 11971896 (Version 2)
Quarter: 2016Q2

REPORT INFORMATION
  Report Type: Spontaneous
  Country: JP (occurrence: JP)
  Receive Date: 20160128
  Receipt Date: 20160407
  Transmission Date: 20160815
  Serious: Yes (Hospitalization)
  Sender: FDA-Public Use
  Company Number: JP-SA-200512016EU

PATIENT
  Age: 38 Year
  Sex: Female

DRUGS (8)
  1. FUROSEMIDE. [Suspect]
     Active Substance: FUROSEMIDE
     Indication: OLIGURIA
     Dosage: DOSE AS USED: UNK
     Route: 065
  2. FUROSEMIDE. [Suspect]
     Active Substance: FUROSEMIDE
     Indication: OLIGURIA
     Dosage: DOSE AS USED: UNK
     Route: 042
  3. FUROSEMIDE. [Suspect]
     Active Substance: FUROSEMIDE
     Indication: OLIGURIA
     Dosage: DOSE AS USED: UNK
     Route: 042
  4. FUROSEMIDE. [Suspect]
     Active Substance: FUROSEMIDE
     Indication: OLIGURIA
     Dosage: DOSE AS USED: UNK
     Route: 065
  5. OXYGEN. [Concomitant]
     Active Substance: OXYGEN
     Dosage: 5 L/MIN
  6. FUROSEMIDE. [Suspect]
     Active Substance: FUROSEMIDE
     Indication: OLIGURIA
     Dosage: DOSE AS USED: UNK
     Route: 042
  7. FUROSEMIDE. [Suspect]
     Active Substance: FUROSEMIDE
     Indication: OLIGURIA
     Dosage: DOSE AS USED: UNK
     Route: 042
  8. HEPARIN [Concomitant]
     Active Substance: HEPARIN SODIUM
     Indication: THROMBOSIS PROPHYLAXIS

REACTIONS (6)
  - Fibrin D dimer increased [Recovered/Resolved]
  - Cardio-respiratory arrest [Recovered/Resolved]
  - Blood pressure decreased [Recovered/Resolved]
  - Pulmonary embolism [Recovered/Resolved]
  - Oxygen saturation decreased [Recovered/Resolved]
  - Coma scale abnormal [Recovered/Resolved]
